FAERS Safety Report 15110255 (Version 6)
Quarter: 2018Q4

REPORT INFORMATION
  Report Type: Report from Study
  Country: US (occurrence: US)
  Receive Date: 20180705
  Receipt Date: 20181126
  Transmission Date: 20190204
  Serious: Yes (Hospitalization, Disabling)
  Sender: FDA-Public Use
  Company Number: PHHO2018US007956

PATIENT

DRUGS (17)
  1. PEGASPARGASE [Suspect]
     Active Substance: PEGASPARGASE
     Dosage: 6175 IU (2500 IU/M2/DOSE), DELAYED INTENSIFICATION  DAY 4 AND 43
     Route: 042
     Dates: start: 20180621, end: 20180621
  2. LEVOCARNITINE. [Concomitant]
     Active Substance: LEVOCARNITINE
     Indication: SUPPLEMENTATION THERAPY
     Dosage: 999 MG, BID
     Route: 048
     Dates: start: 20171211
  3. INC424A [Suspect]
     Active Substance: RUXOLITINIB
     Dosage: 80 MG, BID
     Route: 048
     Dates: start: 20180626, end: 20180705
  4. CHOLECALCIFEROL [Concomitant]
     Active Substance: CHOLECALCIFEROL
     Indication: SUPPLEMENTATION THERAPY
     Dosage: 4000 U, QD
     Route: 048
     Dates: start: 20171201
  5. AMLODIPINE [Concomitant]
     Active Substance: AMLODIPINE BESYLATE
     Indication: BLOOD PRESSURE MEASUREMENT
     Dosage: 5 MG, QD
     Route: 048
     Dates: start: 20180330
  6. PEGASPARGASE [Suspect]
     Active Substance: PEGASPARGASE
     Indication: ACUTE LYMPHOCYTIC LEUKAEMIA
     Dosage: 6175 IU,(CONSOLIDATION PHASE)
     Route: 042
     Dates: start: 20180103
  7. INC424A [Suspect]
     Active Substance: RUXOLITINIB
     Dosage: 80 MG, BID
     Route: 048
     Dates: start: 20180807
  8. PEGASPARGASE [Suspect]
     Active Substance: PEGASPARGASE
     Dosage: 5625 IU (2500 IU/M2/DOSE), DAY 4 AND 43
     Route: 042
     Dates: start: 20180821, end: 20180821
  9. METHOTREXATE. [Suspect]
     Active Substance: METHOTREXATE
     Dosage: 15 MG ON DAY 1
     Route: 037
     Dates: start: 20180618
  10. BACTRIM DS [Concomitant]
     Active Substance: SULFAMETHOXAZOLE\TRIMETHOPRIM
     Indication: PROPHYLAXIS
     Dosage: 160 MG BID, (SATURDAY AND SUNDAY)
     Route: 065
     Dates: start: 20171110
  11. INC424A [Suspect]
     Active Substance: RUXOLITINIB
     Indication: ACUTE LYMPHOCYTIC LEUKAEMIA
     Dosage: 80 MG, BID
     Route: 048
     Dates: start: 20171219, end: 20180625
  12. RIVAROXABAN [Concomitant]
     Active Substance: RIVAROXABAN
     Indication: ANTICOAGULANT THERAPY
     Dosage: 15 MG, QD
     Route: 048
     Dates: start: 20171201
  13. RIVAROXABAN [Concomitant]
     Active Substance: RIVAROXABAN
     Indication: DEEP VEIN THROMBOSIS
  14. METHOTREXATE. [Suspect]
     Active Substance: METHOTREXATE
     Indication: ACUTE LYMPHOCYTIC LEUKAEMIA
     Dosage: 15 MG ON DAY 1
     Route: 037
     Dates: start: 20171219
  15. VINCRISTINE [Suspect]
     Active Substance: VINCRISTINE
     Indication: ACUTE LYMPHOCYTIC LEUKAEMIA
     Dosage: 2 MG DAYS 1, 8, 15
     Route: 042
     Dates: start: 20180103, end: 20180626
  16. DEXAMETHASONE. [Suspect]
     Active Substance: DEXAMETHASONE
     Indication: ACUTE LYMPHOCYTIC LEUKAEMIA
     Dosage: 12 MG, BID DAYS 1 7 AND 15 21
     Route: 048
     Dates: start: 20180618, end: 20180624
  17. DOXORUBICIN [Suspect]
     Active Substance: DOXORUBICIN
     Indication: ACUTE LYMPHOCYTIC LEUKAEMIA
     Dosage: 62 MG, DAYS 1,8,15
     Route: 042
     Dates: end: 20180618

REACTIONS (9)
  - Aspergillus infection [Recovered/Resolved]
  - Escherichia bacteraemia [Recovered/Resolved]
  - Myositis [Recovered/Resolved]
  - Cellulitis [Recovered/Resolved]
  - Pneumonia [Recovered/Resolved]
  - Septic shock [Recovered/Resolved]
  - Febrile neutropenia [Recovered/Resolved]
  - Hyperglycaemia [Recovered/Resolved]
  - Parainfluenzae virus infection [Recovered/Resolved]

NARRATIVE: CASE EVENT DATE: 20180625
